FAERS Safety Report 5703945-5 (Version None)
Quarter: 2008Q2

REPORT INFORMATION
  Report Type: 
  Country: None (occurrence: None)
  Receive Date: 20080409
  Receipt Date: 20080331
  Transmission Date: 20081010
  Serious: Yes (Hospitalization, Other)
  Sender: FDA-Public Use
  Company Number: 2008008238

PATIENT
  Sex: Female
  Weight: 2.94 kg

DRUGS (1)
  1. MYLANTA PLUS (MAGNESIUM HYDROXIDE, ALUMINIUM HYDROXIDE, SIMETHICONE) [Suspect]
     Dosage: 2 LIDS 1X/DAY (1 IN 1 D), PLACENTAL
     Dates: start: 20070101, end: 20080301

REACTIONS (2)
  - DRUG EXPOSURE DURING PREGNANCY [None]
  - JAUNDICE NEONATAL [None]
